FAERS Safety Report 5319234-7 (Version None)
Quarter: 2007Q2

REPORT INFORMATION
  Report Type: 
  Country: None (occurrence: None)
  Receive Date: 20070508
  Receipt Date: 20070426
  Transmission Date: 20071010
  Serious: Yes (Hospitalization)
  Sender: FDA-Public Use
  Company Number: ZA-GILEAD-2007-0011957

PATIENT
  Sex: Female

DRUGS (6)
  1. EMTRICITABINE/TENOFOVIR DISOPROXIL FUMARATE [Suspect]
     Route: 048
     Dates: start: 20060615
  2. ATAZANAVIR SULFATE [Suspect]
     Route: 048
     Dates: start: 20060615
  3. RITONAVIR [Suspect]
     Route: 048
     Dates: start: 20060615
  4. BACTRIM [Concomitant]
     Dates: start: 20060626
  5. MYCOSTATIN [Concomitant]
     Dates: start: 20060607
  6. VITAMIN B CO/FE SULPHATE [Concomitant]
     Dates: start: 20061101

REACTIONS (1)
  - CEREBROVASCULAR ACCIDENT [None]
